FAERS Safety Report 8255322-3 (Version None)
Quarter: 2012Q1

REPORT INFORMATION
  Report Type: 
  Country: None (occurrence: None)
  Receive Date: 20120330
  Receipt Date: 20120316
  Transmission Date: 20120608
  Serious: Yes (Hospitalization, Other)
  Sender: FDA-Public Use
  Company Number: CIP11000505

PATIENT
  Age: 78 Year
  Sex: Female

DRUGS (31)
  1. ALREX /01388302/ (LOTEPREDNOL ETABONATE) [Concomitant]
  2. CADUET [Concomitant]
  3. DETROL LA [Concomitant]
  4. TYLENOL /00020001/ (PARACETAMOL) [Concomitant]
  5. VITAMINS NOS (VITAMINS NOS) [Concomitant]
  6. ASPIRIN [Concomitant]
  7. DOXAZOSIN MESYLATE (DOXAZOSIN MESILATE) [Concomitant]
  8. FEXOFENADINE HCL [Concomitant]
  9. TRIAMTERENE AND HYDROCHLOROTHIAZIDE (HYDROCHLOROTHIAZIDE, TRIAMTERENE) [Concomitant]
  10. PRILOSEC [Concomitant]
  11. TRAZODONE HCL [Concomitant]
  12. ZYRTEC [Concomitant]
  13. ACTONEL [Suspect]
     Dosage: 35 MG ONCE WEEKLY, ORAL, 35 MG ONCE WEEKLY (4 DOSES), ORAL
     Route: 048
     Dates: start: 20100304, end: 20100301
  14. ACTONEL [Suspect]
     Dosage: 35 MG ONCE WEEKLY, ORAL, 35 MG ONCE WEEKLY (4 DOSES), ORAL
     Route: 048
     Dates: start: 20070301, end: 20090301
  15. SULFAMETHOXAZOLE AND TRIMETHOPRIM [Concomitant]
  16. ZANTAC [Concomitant]
  17. FORTEO [Concomitant]
  18. MELOXICAM [Concomitant]
  19. PLENDIL [Concomitant]
  20. CALCIUM + VIT D (CALCIUM, COLECALCIFEROL) [Concomitant]
  21. FISH OIL (FISH OIL) [Concomitant]
  22. MIRTAZAPINE [Concomitant]
  23. ACTONEL WITH CALCIUM (COPACKAGED) [Suspect]
     Dosage: 35 MG WEEKLY, CALCIUM DAILY, ORAL
     Route: 048
     Dates: start: 20070315, end: 20081015
  24. SIMVASTATIN [Concomitant]
  25. FOSAMAX [Suspect]
     Dosage: 70 MG ONCE WEEKLY, ORAL, 70 MG ONCE A WEEK, ORAL
     Route: 048
     Dates: start: 20090319, end: 20100101
  26. FOSAMAX [Suspect]
     Dosage: 70 MG ONCE WEEKLY, ORAL, 70 MG ONCE A WEEK, ORAL
     Route: 048
     Dates: start: 20011011, end: 20100101
  27. NYSTATIN [Concomitant]
  28. LEVOXYL [Concomitant]
  29. POTASSIUM CHLORIDE [Concomitant]
  30. NIACIN [Concomitant]
  31. BISOPROLOL FUMARATE [Concomitant]

REACTIONS (23)
  - STRESS FRACTURE [None]
  - FEMUR FRACTURE [None]
  - PATHOLOGICAL FRACTURE [None]
  - ANAEMIA POSTOPERATIVE [None]
  - EXOSTOSIS [None]
  - NO THERAPEUTIC RESPONSE [None]
  - TENDERNESS [None]
  - BURSITIS [None]
  - GROIN PAIN [None]
  - PAIN IN EXTREMITY [None]
  - VAGINAL LESION [None]
  - GAIT DISTURBANCE [None]
  - PAIN [None]
  - NEOPLASM [None]
  - DYSPEPSIA [None]
  - INFECTION [None]
  - MUSCLE ATROPHY [None]
  - ABDOMINAL PAIN UPPER [None]
  - RHINITIS ALLERGIC [None]
  - SINUSITIS [None]
  - FRACTURE DISPLACEMENT [None]
  - ARTHRALGIA [None]
  - PUBIS FRACTURE [None]
